FAERS Safety Report 7005747-9 (Version None)
Quarter: 2010Q3

REPORT INFORMATION
  Report Type: 
  Country: None (occurrence: None)
  Receive Date: 20100921
  Receipt Date: 20100909
  Transmission Date: 20110219
  Serious: Yes (Hospitalization, Other)
  Sender: FDA-Public Use
  Company Number: GB-ELI_LILLY_AND_COMPANY-GB201009002389

PATIENT
  Age: 75 Year
  Sex: Female

DRUGS (1)
  1. HUMATROPE [Suspect]
     Dosage: UNK, UNKNOWN
     Route: 065

REACTIONS (2)
  - CONFUSIONAL STATE [None]
  - DIARRHOEA [None]
